FAERS Safety Report 7246216-0 (Version None)
Quarter: 2011Q1

REPORT INFORMATION
  Report Type: 
  Country: None (occurrence: None)
  Receive Date: 20110126
  Receipt Date: 20110121
  Transmission Date: 20110831
  Serious: Yes (Hospitalization)
  Sender: FDA-Public Use
  Company Number: B0695794A

PATIENT
  Age: 41 Year
  Sex: Male

DRUGS (1)
  1. AVANDAMET [Suspect]
     Route: 048
     Dates: start: 20040101, end: 20050701

REACTIONS (2)
  - CHEST PAIN [None]
  - CEREBROVASCULAR ACCIDENT [None]
